FAERS Safety Report 19854169 (Version 1)
Quarter: 2021Q3

REPORT INFORMATION
  Report Type: Spontaneous
  Country: US (occurrence: US)
  Receive Date: 20210920
  Receipt Date: 20210920
  Transmission Date: 20211014
  Serious: Yes (Death, Hospitalization, Other)
  Sender: FDA-Public Use
  Company Number: US-CIPLA LTD.-2021US06284

PATIENT

DRUGS (1)
  1. WARFARIN [Suspect]
     Active Substance: WARFARIN
     Indication: INTRACARDIAC THROMBUS
     Dosage: UNK
     Route: 065

REACTIONS (5)
  - Cardiac neoplasm malignant [Unknown]
  - Angiosarcoma metastatic [Unknown]
  - Pericardial effusion [Unknown]
  - Cardiac arrest [Fatal]
  - Cardiac tamponade [Unknown]
